FAERS Safety Report 7590127-8 (Version None)
Quarter: 2011Q3

REPORT INFORMATION
  Report Type: 
  Country: None (occurrence: None)
  Receive Date: 20110705
  Receipt Date: 20110624
  Transmission Date: 20111222
  Serious: Yes (Other)
  Sender: FDA-Public Use
  Company Number: B0730299A

PATIENT

DRUGS (1)
  1. LAPATINIB [Suspect]
     Route: 065
     Dates: start: 20100217, end: 20100227

REACTIONS (2)
  - SKIN TOXICITY [None]
  - DIARRHOEA [None]
